FAERS Safety Report 20667994 (Version 2)
Quarter: 2022Q4

REPORT INFORMATION
  Report Type: Other
  Country: IN (occurrence: None)
  Receive Date: 20220404
  Receipt Date: 20221014
  Transmission Date: 20230113
  Serious: Yes (Death, Other)
  Sender: FDA-Public Use
  Company Number: IN-ROCHE-3062863

PATIENT
  Age: 64 Year
  Sex: Female

DRUGS (1)
  1. PERJETA [Suspect]
     Active Substance: PERTUZUMAB
     Indication: Breast cancer
     Route: 042

REACTIONS (2)
  - Performance status decreased [Unknown]
  - Death [Fatal]

NARRATIVE: CASE EVENT DATE: 20221005
